FAERS Safety Report 7716919-X (Version None)
Quarter: 2011Q3

REPORT INFORMATION
  Report Type: 
  Country: None (occurrence: None)
  Receive Date: 20110829
  Receipt Date: 20110818
  Transmission Date: 20111222
  Serious: Yes (Hospitalization, Other)
  Sender: FDA-Public Use
  Company Number: US-ASTRAZENECA-2009UW12876

PATIENT
  Age: 44 Year
  Sex: Female
  Weight: 62.6 kg

DRUGS (6)
  1. SEROQUEL [Suspect]
     Dosage: ONE TABLET TWICE A DAY AND TWO TABLETS AT NIGHT
     Route: 048
  2. FENTANYL [Concomitant]
     Indication: NEUROPATHY PERIPHERAL
  3. PREDNISONE [Concomitant]
  4. METFORMIN HYDROCHLORIDE [Concomitant]
     Indication: DIABETES MELLITUS
  5. LEVOTHYROXINE SODIUM [Concomitant]
     Indication: THYROID DISORDER
     Dosage: 250-50 DAILY
  6. SEROQUEL [Suspect]
     Indication: BIPOLAR DISORDER
     Route: 048

REACTIONS (7)
  - MOOD SWINGS [None]
  - NERVOUSNESS [None]
  - DRUG DOSE OMISSION [None]
  - MALAISE [None]
  - ADVERSE EVENT [None]
  - INSOMNIA [None]
  - PNEUMONIA [None]
